FAERS Safety Report 11818096 (Version 1)
Quarter: 2015Q4

REPORT INFORMATION
  Report Type: Spontaneous
  Country: US (occurrence: None)
  Receive Date: 20151209
  Receipt Date: 20151209
  Transmission Date: 20160305
  Serious: Yes (Other)
  Sender: FDA-Public Use
  Company Number: None

PATIENT
  Age: 17 Year
  Sex: Female
  Weight: 61.8 kg

DRUGS (1)
  1. NEXPLANON [Suspect]
     Active Substance: ETONOGESTREL
     Indication: CONTRACEPTION
     Dosage: FREQUENCY: 3 YRS?(INSERTION)
     Route: 059
     Dates: start: 20151028

REACTIONS (3)
  - Rash [None]
  - Implant site urticaria [None]
  - Hypersensitivity [None]

NARRATIVE: CASE EVENT DATE: 20151106
